FAERS Safety Report 9681974 (Version 1)
Quarter: 2013Q4

REPORT INFORMATION
  Report Type: Spontaneous
  Country: IL (occurrence: IL)
  Receive Date: 20131111
  Receipt Date: 20131111
  Transmission Date: 20140711
  Serious: Yes (Death, Other)
  Sender: FDA-Public Use
  Company Number: IL-JHP PHARMACEUTICALS, LLC-JHP201300683

PATIENT
  Age: 52 Year
  Sex: Male

DRUGS (2)
  1. COLY-MYCIN M PARENTERAL [Suspect]
     Indication: KLEBSIELLA BACTERAEMIA
     Dosage: 6 X 10^6 IU/ DAY
     Route: 042
  2. COLY-MYCIN M PARENTERAL [Suspect]
     Dosage: 3 X 10^6 IU/DAY
     Route: 042

REACTIONS (2)
  - Klebsiella sepsis [Fatal]
  - Nephropathy toxic [Unknown]
